FAERS Safety Report 19775316 (Version 4)
Quarter: 2021Q4

REPORT INFORMATION
  Report Type: Spontaneous
  Country: NZ (occurrence: NZ)
  Receive Date: 20210901
  Receipt Date: 20211129
  Transmission Date: 20220303
  Serious: Yes (Death, Hospitalization)
  Sender: FDA-Public Use
  Company Number: NZ-MYLANLABS-2021M1057872

PATIENT
  Age: 59 Year
  Sex: Male

DRUGS (6)
  1. CLOZARIL [Suspect]
     Active Substance: CLOZAPINE
     Indication: Schizophrenia
     Dosage: UNK
     Dates: start: 19980820
  2. CLOZARIL [Suspect]
     Active Substance: CLOZAPINE
     Dosage: 100 MG MANE, 50 MG NOCTE
     Route: 048
  3. CLOZARIL [Suspect]
     Active Substance: CLOZAPINE
     Dosage: DOSE REDUCED
     Route: 048
     Dates: start: 20210428
  4. CLOZARIL [Suspect]
     Active Substance: CLOZAPINE
     Dosage: UNK
  5. VENTOLIN [Concomitant]
     Active Substance: ALBUTEROL SULFATE
     Dosage: 100 MICROGRAM, PRN
  6. BENZTROPINE                        /00012901/ [Concomitant]
     Dosage: 4 MILLIGRAM, QD

REACTIONS (6)
  - Death [Fatal]
  - Catatonia [Recovering/Resolving]
  - Psychotic disorder [Unknown]
  - Lymphocyte count decreased [Unknown]
  - Haematocrit increased [Unknown]
  - Product dose omission issue [Recovered/Resolved]

NARRATIVE: CASE EVENT DATE: 20210817
